FAERS Safety Report 11090502 (Version 1)
Quarter: 2015Q2

REPORT INFORMATION
  Report Type: Spontaneous
  Country: TW (occurrence: TW)
  Receive Date: 20150505
  Receipt Date: 20150505
  Transmission Date: 20150821
  Serious: Yes (Other)
  Sender: FDA-Public Use
  Company Number: TW-PFIZER INC-2015147906

PATIENT
  Sex: Female

DRUGS (2)
  1. XANAX [Suspect]
     Active Substance: ALPRAZOLAM
     Indication: NOCTURIA
     Dosage: 0.5 MG, 1X/DAY AT BED-TIME
     Route: 048
     Dates: end: 201502
  2. XANAX [Suspect]
     Active Substance: ALPRAZOLAM
     Dosage: 0.25 MG, 1X/DAY AT BED-TIME
     Route: 048
     Dates: start: 2015

REACTIONS (7)
  - Depression [Unknown]
  - Suicidal ideation [Unknown]
  - Decreased appetite [Unknown]
  - Intentional product misuse [Unknown]
  - Anxiety [Unknown]
  - Head discomfort [Unknown]
  - Mental status changes [Not Recovered/Not Resolved]

NARRATIVE: CASE EVENT DATE: 2015
